FAERS Safety Report 9008465 (Version 2)
Quarter: 2013Q1

REPORT INFORMATION
  Report Type: Spontaneous
  Country: US (occurrence: None)
  Receive Date: 20121227
  Receipt Date: 20130124
  Transmission Date: 20140127
  Serious: Yes (Other)
  Sender: FDA-Public Use
  Company Number: AUR-APL-2012-05521

PATIENT
  Age: 53 Year
  Sex: Female

DRUGS (5)
  1. SUMATRIPTAN [Suspect]
     Indication: HEADACHE
     Route: 058
  2. ALMOTRIPTAN [Suspect]
     Indication: MIGRAINE
     Dosage: HALF TO ONE TAB, ORAL
     Route: 048
  3. MAGNESIUM(MAGNESIUM) [Concomitant]
  4. RIBOFLAVIN (RIBOFLAVIN) [Concomitant]
  5. NAPROXEN (NAPROXEN) [Concomitant]

REACTIONS (6)
  - Ventricular tachyarrhythmia [None]
  - Myocardial ischaemia [None]
  - Arteriosclerosis coronary artery [None]
  - Arteriospasm coronary [None]
  - Electrocardiogram QT prolonged [None]
  - Torsade de pointes [None]
